FAERS Safety Report 8674183 (Version 2)
Quarter: 2012Q4

REPORT INFORMATION
  Report Type: 
  Country: US (occurrence: US)
  Receive Date: 20120719
  Receipt Date: 20121113
  Transmission Date: 20130627
  Serious: No
  Sender: FDA-Public Use
  Company Number: US-ASTRAZENECA-2012SE47337

PATIENT
  Age: 56 Year
  Sex: Male

DRUGS (1)
  1. NEXIUM [Suspect]
     Route: 048

REACTIONS (6)
  - Aphagia [Unknown]
  - Malaise [Unknown]
  - Diarrhoea [Unknown]
  - Insomnia [Unknown]
  - Abdominal discomfort [Unknown]
  - Drug dose omission [Unknown]
